FAERS Safety Report 8877034 (Version 1)
Quarter: 2012Q4

REPORT INFORMATION
  Report Type: 
  Country: FR (occurrence: FR)
  Receive Date: 20121030
  Receipt Date: 20121030
  Transmission Date: 20130627
  Serious: Yes (Hospitalization)
  Sender: FDA-Public Use
  Company Number: FR-ASTELLAS-2012EU009531

PATIENT
  Age: 86 Year
  Sex: Male

DRUGS (9)
  1. VESICARE [Suspect]
     Indication: URINARY INCONTINENCE
     Dosage: 5 mg, UID/QD
     Route: 048
     Dates: end: 20120829
  2. TAVANIC [Suspect]
     Indication: INFECTION
     Dosage: 750 mg, Unknown/D
     Route: 048
     Dates: start: 201207, end: 20120903
  3. REMINYL [Suspect]
     Indication: DEMENTIA
     Dosage: 16 mg, UID/QD
     Route: 048
     Dates: end: 20120905
  4. PAROXETINE [Concomitant]
     Indication: DEPRESSION
     Dosage: 20 mg, Unknown/D
     Route: 048
  5. SOTALOL [Concomitant]
     Dosage: UNK
     Route: 065
  6. ALDACTONE                          /00006201/ [Concomitant]
     Dosage: UNK
     Route: 065
  7. SIMVASTATIN [Concomitant]
     Dosage: UNK
     Route: 065
  8. KARDEGIC [Concomitant]
     Dosage: UNK
     Route: 065
  9. RIFADINE [Concomitant]
     Indication: DEVICE RELATED INFECTION
     Dosage: 600 mg, bid
     Route: 065
     Dates: start: 201207

REACTIONS (1)
  - Convulsion [Recovered/Resolved]
